FAERS Safety Report 13427849 (Version 5)
Quarter: 2018Q2

REPORT INFORMATION
  Report Type: Spontaneous
  Country: IT (occurrence: IT)
  Receive Date: 20170411
  Receipt Date: 20180425
  Transmission Date: 20180711
  Serious: Yes (Hospitalization, Other)
  Sender: FDA-Public Use
  Company Number: IT-SA-2017SA061339

PATIENT
  Age: 34 Year
  Sex: Male

DRUGS (9)
  1. IBUPROFEN. [Suspect]
     Active Substance: IBUPROFEN
     Dosage: UNSPECIFIED NUMBER OF SACHETS OF IBUPROFEN
     Route: 048
     Dates: start: 20170222
  2. COCAINE [Suspect]
     Active Substance: COCAINE
     Route: 065
     Dates: start: 20170222
  3. ZIRTEC [Suspect]
     Active Substance: CETIRIZINE HYDROCHLORIDE
     Route: 048
     Dates: start: 20170222
  4. NORMIX [Suspect]
     Active Substance: RIFAXIMIN
     Dosage: SOME TABLETS
     Route: 048
     Dates: start: 20170222
  5. ALCOHOL. [Concomitant]
     Active Substance: ALCOHOL
  6. PARACETAMOL [Suspect]
     Active Substance: ACETAMINOPHEN
     Dosage: ONE 500 MG PACKAGE AND 1 SYRUP BOTTLE
     Route: 048
     Dates: start: 20170222
  7. AUGMENTIN [Suspect]
     Active Substance: AMOXICILLIN\CLAVULANATE POTASSIUM
     Route: 048
     Dates: start: 20170222, end: 20170222
  8. ALCOHOL. [Concomitant]
     Active Substance: ALCOHOL
  9. ENOXAPARIN SODIUM. [Suspect]
     Active Substance: ENOXAPARIN SODIUM
     Dosage: 4/5 AMPOULES OF ENOXAPARIN (ACTIVE SUBSTANCE) 4000 IU INJECTABLE SOLUTION FOR SUBCUTANEOUS?USE
     Route: 058
     Dates: start: 20170222

REACTIONS (3)
  - Abdominal pain upper [Unknown]
  - Sopor [Unknown]
  - Drug abuse [Unknown]

NARRATIVE: CASE EVENT DATE: 20170222
